FAERS Safety Report 22971692 (Version 12)
Quarter: 2025Q3

REPORT INFORMATION
  Report Type: Spontaneous
  Country: CA (occurrence: CA)
  Receive Date: 20230922
  Receipt Date: 20250926
  Transmission Date: 20251021
  Serious: Yes (Hospitalization, Other)
  Sender: PFIZER
  Company Number: CA-PFIZER INC-PV202300141135

PATIENT
  Age: 71 Year
  Sex: Male

DRUGS (7)
  1. XYNTHA [Suspect]
     Active Substance: MOROCTOCOG ALFA
     Indication: Factor VIII deficiency
     Route: 042
     Dates: start: 20150118
  2. XYNTHA [Suspect]
     Active Substance: MOROCTOCOG ALFA
     Route: 042
     Dates: start: 20230831
  3. XYNTHA [Suspect]
     Active Substance: MOROCTOCOG ALFA
     Route: 042
     Dates: start: 20230831
  4. XYNTHA [Suspect]
     Active Substance: MOROCTOCOG ALFA
     Dosage: 3000 IU EVERY OTHER DAY
     Route: 042
     Dates: start: 20230831
  5. XYNTHA [Suspect]
     Active Substance: MOROCTOCOG ALFA
     Dosage: 4000 IU EVERY OTHER DAY
     Route: 042
  6. XYNTHA [Suspect]
     Active Substance: MOROCTOCOG ALFA
  7. XYNTHA [Suspect]
     Active Substance: MOROCTOCOG ALFA
     Route: 042
     Dates: start: 20250920

REACTIONS (7)
  - Haemorrhage intracranial [Recovered/Resolved]
  - Factor VIII activity decreased [Not Recovered/Not Resolved]
  - Device connection issue [Unknown]
  - Device leakage [Unknown]
  - Dizziness [Not Recovered/Not Resolved]
  - Polyuria [Unknown]
  - Constipation [Unknown]

NARRATIVE: CASE EVENT DATE: 20230101
